FAERS Safety Report 22616404 (Version 1)
Quarter: 2023Q2

REPORT INFORMATION
  Report Type: Other
  Country: None (occurrence: US)
  Receive Date: 20230619
  Receipt Date: 20230619
  Transmission Date: 20230722
  Serious: Yes (Hospitalization)
  Sender: FDA-Public Use
  Company Number: US-ALSI-2023000094

PATIENT
  Age: 43 Year
  Sex: Female

DRUGS (1)
  1. CARBON DIOXIDE [Suspect]
     Active Substance: CARBON DIOXIDE
     Indication: Sleeve gastrectomy

REACTIONS (1)
  - Portal vein thrombosis [Recovered/Resolved]
